FAERS Safety Report 8560303 (Version 2)
Quarter: 2012Q4

REPORT INFORMATION
  Report Type: Report from Study
  Country: US (occurrence: US)
  Receive Date: 20120514
  Receipt Date: 20121130
  Transmission Date: 20130627
  Serious: Yes (Death)
  Sender: FDA-Public Use
  Company Number: US-ROCHE-1067791

PATIENT
  Age: 51 Year
  Sex: Male

DRUGS (1)
  1. RITUXIMAB [Suspect]
     Indication: NON-HODGKIN^S LYMPHOMA
     Route: 065
     Dates: start: 20120508

REACTIONS (1)
  - Sudden death [Fatal]
